FAERS Safety Report 14431655 (Version 1)
Quarter: 2018Q1

REPORT INFORMATION
  Report Type: Spontaneous
  Country: MY (occurrence: MY)
  Receive Date: 20180124
  Receipt Date: 20180124
  Transmission Date: 20180509
  Serious: Yes (Death, Hospitalization, Other)
  Sender: FDA-Public Use
  Company Number: MY-BAYER-2017-204719

PATIENT
  Age: 48 Year
  Sex: Male

DRUGS (3)
  1. TAZOCIN [Concomitant]
     Active Substance: PIPERACILLIN SODIUM\TAZOBACTAM SODIUM
     Dosage: 4.5 G, QID
  2. AMIODARON [Concomitant]
     Active Substance: AMIODARONE
     Dosage: UNK
     Route: 042
  3. AVELOX [Suspect]
     Active Substance: MOXIFLOXACIN HYDROCHLORIDE
     Indication: PNEUMONIA
     Dosage: 400 MG, QD
     Route: 042
     Dates: start: 20171015, end: 20171022

REACTIONS (4)
  - Dyspnoea [Fatal]
  - Ventricular fibrillation [Fatal]
  - Pleural decortication [None]
  - Arrhythmia [Fatal]
